FAERS Safety Report 5707155-7 (Version None)
Quarter: 2008Q2

REPORT INFORMATION
  Report Type: 
  Country: None (occurrence: None)
  Receive Date: 20080416
  Receipt Date: 20070418
  Transmission Date: 20081010
  Serious: Yes (Life-Threatening)
  Sender: FDA-Public Use
  Company Number: US-BAXTER-2008BH003495

PATIENT
  Sex: Female

DRUGS (1)
  1. DURAMORPH PF [Suspect]
     Indication: DRUG USE FOR UNKNOWN INDICATION
     Route: 065
     Dates: start: 20070401, end: 20070401

REACTIONS (2)
  - DRUG EXPOSURE DURING PREGNANCY [None]
  - RESPIRATORY ARREST [None]
